FAERS Safety Report 20784603 (Version 1)
Quarter: 2022Q2

REPORT INFORMATION
  Report Type: Spontaneous
  Country: BR (occurrence: BR)
  Receive Date: 20220504
  Receipt Date: 20220504
  Transmission Date: 20220721
  Serious: Yes (Other)
  Sender: FDA-Public Use
  Company Number: BR-PFIZER INC-202200634545

PATIENT
  Age: 63 Year
  Sex: Male
  Weight: 132 kg

DRUGS (3)
  1. FLUCONAZOLE [Suspect]
     Active Substance: FLUCONAZOLE
     Indication: Device related infection
     Dosage: 400 MG, 1X/DAY
     Route: 042
     Dates: start: 20211023
  2. FLUCONAZOLE [Suspect]
     Active Substance: FLUCONAZOLE
     Indication: Candida infection
  3. MICAFUNGIN [Suspect]
     Active Substance: MICAFUNGIN
     Dosage: 150 MG, 1X/DAY
     Route: 042
     Dates: start: 20211021, end: 20211023

REACTIONS (2)
  - Aspartate aminotransferase increased [Unknown]
  - Alanine aminotransferase increased [Unknown]

NARRATIVE: CASE EVENT DATE: 20211024
